FAERS Safety Report 10472415 (Version 4)
Quarter: 2014Q4

REPORT INFORMATION
  Report Type: Report from Study
  Country: JP (occurrence: JP)
  Receive Date: 20140924
  Receipt Date: 20141217
  Transmission Date: 20150528
  Serious: Yes (Death, Life-Threatening, Other)
  Sender: FDA-Public Use
  Company Number: PHHY2012JP080299

PATIENT
  Age: 50 Year
  Sex: Female
  Weight: 58 kg

DRUGS (13)
  1. AFINITOR [Suspect]
     Active Substance: EVEROLIMUS
     Dosage: 5 MG, QD
     Route: 048
     Dates: start: 20120704, end: 20120711
  2. AFINITOR [Suspect]
     Active Substance: EVEROLIMUS
     Dosage: 5 MG, QD
     Route: 048
     Dates: start: 20120920, end: 20120927
  3. SANDOSTATIN LAR DEPOT [Concomitant]
     Active Substance: OCTREOTIDE ACETATE
     Indication: PANCREATIC NEUROENDOCRINE TUMOUR
     Route: 030
  4. RANMARK [Concomitant]
     Active Substance: DENOSUMAB
     Indication: HYPERCALCAEMIA
     Route: 065
     Dates: start: 20121004, end: 20121004
  5. SODIUM BICARBONATE. [Concomitant]
     Active Substance: SODIUM BICARBONATE
     Indication: HYPERCALCAEMIA
     Dosage: 2 G, UNK
     Route: 048
     Dates: start: 20120906
  6. LASKARTON [Concomitant]
     Indication: HYPERCALCAEMIA
     Dosage: 2 ML, UNK
     Route: 065
     Dates: start: 20120920, end: 20120920
  7. OXYCONTIN [Concomitant]
     Active Substance: OXYCODONE HYDROCHLORIDE
     Indication: PANCREATIC NEUROENDOCRINE TUMOUR
     Dosage: 10 MG, UNK
     Route: 048
     Dates: start: 20120726, end: 20121004
  8. AFINITOR [Suspect]
     Active Substance: EVEROLIMUS
     Dosage: 10 MG, QD
     Route: 048
     Dates: start: 20121010, end: 20121031
  9. AFINITOR [Suspect]
     Active Substance: EVEROLIMUS
     Dosage: 5 MG, QD
     Route: 048
     Dates: start: 20121031, end: 20121218
  10. AFINITOR [Suspect]
     Active Substance: EVEROLIMUS
     Indication: PANCREATIC NEUROENDOCRINE TUMOUR
     Dosage: 10 MG, QD
     Route: 048
     Dates: start: 20120107, end: 20120425
  11. AFINITOR [Suspect]
     Active Substance: EVEROLIMUS
     Dosage: 5 MG, QD
     Route: 048
     Dates: start: 20120907, end: 20120913
  12. AFINITOR [Suspect]
     Active Substance: EVEROLIMUS
     Dosage: 5 MG, QD
     Route: 048
     Dates: start: 20120613, end: 20120627
  13. ZOMETA [Suspect]
     Active Substance: ZOLEDRONIC ACID
     Indication: PRODUCT USED FOR UNKNOWN INDICATION
     Dosage: 1 DF, QD (4 MG/100 ML PER ADMINISTRATION, OVER 15 MIN)
     Route: 041

REACTIONS (6)
  - Malignant neoplasm progression [Fatal]
  - Gastric varices haemorrhage [Recovering/Resolving]
  - Platelet count decreased [Recovered/Resolved]
  - White blood cell count decreased [Recovered/Resolved]
  - Tubulointerstitial nephritis [Not Recovered/Not Resolved]
  - Anaemia [Recovering/Resolving]

NARRATIVE: CASE EVENT DATE: 20101222
